FAERS Safety Report 23697125 (Version 1)
Quarter: 2024Q2

REPORT INFORMATION
  Report Type: Spontaneous
  Country: US (occurrence: US)
  Receive Date: 20240402
  Receipt Date: 20240402
  Transmission Date: 20240716
  Serious: No
  Sender: FDA-Public Use
  Company Number: US-RECORDATI RARE DISEASE INC.-2024000482

PATIENT

DRUGS (1)
  1. OSILODROSTAT [Suspect]
     Active Substance: OSILODROSTAT
     Indication: Product used for unknown indication

REACTIONS (2)
  - Myopia [Recovered/Resolved]
  - Pituitary-dependent Cushing^s syndrome [Recovered/Resolved]
